FAERS Safety Report 6333022-4 (Version None)
Quarter: 2009Q3

REPORT INFORMATION
  Report Type: 
  Country: None (occurrence: None)
  Receive Date: 20090828
  Receipt Date: 20090824
  Transmission Date: 20100115
  Serious: Yes (Death, Hospitalization)
  Sender: FDA-Public Use
  Company Number: PHHY2009BR28555

PATIENT
  Sex: Male

DRUGS (5)
  1. FORASEQ [Suspect]
     Indication: EMPHYSEMA
     Dosage: 12/400 MCG, BID
  2. TEOLONG [Concomitant]
     Indication: EMPHYSEMA
     Dosage: 2 TABLETS DAILY
  3. BEROTEC [Concomitant]
     Indication: EMPHYSEMA
     Dosage: 3 DRP, BID
  4. ATROVENT [Concomitant]
     Indication: EMPHYSEMA
     Dosage: 15 DRP, BID
  5. DIGOXIN [Concomitant]
     Indication: CARDIAC DISORDER
     Dosage: 1 DF DAILY
     Route: 048

REACTIONS (2)
  - DYSPNOEA [None]
  - RESPIRATORY FAILURE [None]
